FAERS Safety Report 10191184 (Version 1)
Quarter: 2014Q2

REPORT INFORMATION
  Report Type: Spontaneous
  Country: GB (occurrence: GB)
  Receive Date: 20140523
  Receipt Date: 20140523
  Transmission Date: 20141212
  Serious: Yes (Other)
  Sender: FDA-Public Use
  Company Number: GB-MYLANLABS-2014S1011148

PATIENT
  Age: 74 Year
  Sex: Male
  Weight: 81 kg

DRUGS (12)
  1. AZATHIOPRINE [Suspect]
     Indication: MYASTHENIA GRAVIS
     Dosage: WAS DUE TO INCREASE BUT STOPPED AFTER 3 DAYS.
     Route: 048
     Dates: start: 20140411, end: 20140413
  2. ADCAL D3 [Concomitant]
  3. FLUTIFORM [Concomitant]
  4. INDAPAMIDE [Concomitant]
  5. LOPERAMIDE [Concomitant]
  6. LOSARTAN [Concomitant]
  7. PREDNISOLONE [Concomitant]
  8. REMEDEINE [Concomitant]
  9. SANDOSTATIN [Concomitant]
  10. SILDENAFIL [Concomitant]
     Dosage: AS DIRECTED.
  11. TERAZOSIN [Concomitant]
  12. VENTOLIN [Concomitant]

REACTIONS (6)
  - Hypersensitivity [Recovered/Resolved]
  - Nausea [Recovered/Resolved]
  - Diarrhoea [Recovered/Resolved]
  - Influenza like illness [Recovered/Resolved]
  - Myalgia [Recovered/Resolved]
  - Arthralgia [Recovered/Resolved]
